FAERS Safety Report 22625245 (Version 1)
Quarter: 2023Q2

REPORT INFORMATION
  Report Type: Spontaneous
  Country: US (occurrence: None)
  Receive Date: 20230616
  Receipt Date: 20230616
  Transmission Date: 20230722
  Serious: Yes (Death)
  Sender: FDA-Public Use
  Company Number: None

PATIENT
  Sex: Male

DRUGS (23)
  1. TERIPARATIDE [Suspect]
     Active Substance: TERIPARATIDE
     Indication: Senile osteoporosis
     Dosage: 620 MCG/2.48ML SUBCUTANEOUS??INJECT 20 MCG UNDER THE SKIN (SUBCUTANEOUS INJECTION ) DAILY
     Route: 058
     Dates: start: 20230124
  2. ALBUTEROL [Concomitant]
     Active Substance: ALBUTEROL
  3. ASPIRIN LOW TAB [Concomitant]
  4. BENZONATATE CAP [Concomitant]
  5. CINACALCET [Concomitant]
     Active Substance: CINACALCET
  6. DIGOXIN [Concomitant]
     Active Substance: DIGOXIN
  7. DUTASTERIDE CAP [Concomitant]
  8. EMOLLIA-LOT LOT [Concomitant]
  9. ENSURE LIQ VANILLA [Concomitant]
  10. FOLIC ACID [Concomitant]
     Active Substance: FOLIC ACID
  11. GLUCOSAMINE [Concomitant]
  12. IBUPROFEN [Concomitant]
     Active Substance: IBUPROFEN
  13. ISOSORB MONO TAB [Concomitant]
  14. LACTOBACILLU CAP [Concomitant]
  15. MECLIZINE [Concomitant]
     Active Substance: MECLIZINE HYDROCHLORIDE
  16. METOPROL TAR TAB [Concomitant]
  17. MUCINEX [Concomitant]
     Active Substance: GUAIFENESIN
  18. MULTIPLE VIT [Concomitant]
  19. NASONEB NSL MIST [Concomitant]
  20. OMEGA-3 ACIDS [Concomitant]
     Active Substance: OMEGA-3 FATTY ACIDS
  21. SIMVASTATIN [Concomitant]
     Active Substance: SIMVASTATIN
  22. TYLENOL [Concomitant]
     Active Substance: ACETAMINOPHEN
  23. VITAMIN D3 [Concomitant]
     Active Substance: CHOLECALCIFEROL

REACTIONS (1)
  - Death [None]
